FAERS Safety Report 7459375-1 (Version None)
Quarter: 2011Q2

REPORT INFORMATION
  Report Type: 
  Country: None (occurrence: None)
  Receive Date: 20110505
  Receipt Date: 20110427
  Transmission Date: 20111010
  Serious: No
  Sender: FDA-Public Use
  Company Number: US-PFIZER INC-2011092159

PATIENT
  Sex: Female
  Weight: 155 kg

DRUGS (7)
  1. PRIMIDONE [Concomitant]
     Dosage: 100 MG, 2X/DAY
  2. ZOCOR [Suspect]
     Indication: BLOOD CHOLESTEROL INCREASED
     Dosage: 20 MG, 1X/DAY
     Route: 048
     Dates: start: 20110201, end: 20110101
  3. DILANTIN [Concomitant]
     Indication: EPILEPSY
     Dosage: 200 MG, 1X/DAY
     Route: 048
     Dates: start: 19570101
  4. LIPITOR [Suspect]
     Indication: BLOOD CHOLESTEROL INCREASED
     Dosage: 20 MG, 1X/DAY
     Route: 048
  5. AMPICILLIN [Concomitant]
     Dosage: 250 MG, 2X/DAY
  6. NORVASC [Suspect]
     Indication: HYPERTENSION
     Dosage: UNK
     Route: 048
  7. MEDROL [Concomitant]
     Dosage: 100 MG, 2X/DAY
     Route: 048

REACTIONS (2)
  - PAIN IN EXTREMITY [None]
  - NEURALGIA [None]
